FAERS Safety Report 6307615-4 (Version None)
Quarter: 2009Q3

REPORT INFORMATION
  Report Type: 
  Country: None (occurrence: None)
  Receive Date: 20090811
  Receipt Date: 20090731
  Transmission Date: 20100115
  Serious: Yes (Other)
  Sender: FDA-Public Use
  Company Number: GXKR2009US08802

PATIENT

DRUGS (6)
  1. FUROSEMIDE [Suspect]
     Dosage: MATERNAL DOSE: 20 MG, TRANSPLACENTAL
     Route: 064
  2. LIDOCAINE 1.5% W/ EPINEPHRINE 1:200,000 [Suspect]
     Dosage: MATERNAL DOSE: 1.5 MIL, TWO TIMES, TRANSPLACENTAL ; MATERNAL DOSE: 3 ML, TRANSPLACENTAL
     Route: 064
  3. DIGOXIN [Concomitant]
  4. FENTANYL-100 [Concomitant]
  5. THIOPENTAL SODIUM [Concomitant]
  6. SUXAMETHONIUM CHLORIDE (SUXAMETHONIUM CHLORIDE) [Concomitant]

REACTIONS (3)
  - BRADYCARDIA FOETAL [None]
  - CAESAREAN SECTION [None]
  - MATERNAL DRUGS AFFECTING FOETUS [None]
